FAERS Safety Report 7523366-2 (Version None)
Quarter: 2011Q2

REPORT INFORMATION
  Report Type: 
  Country: None (occurrence: None)
  Receive Date: 20110603
  Receipt Date: 20101108
  Transmission Date: 20111010
  Serious: Yes (Hospitalization)
  Sender: FDA-Public Use
  Company Number: B0684058A

PATIENT
  Sex: Female
  Weight: 9 kg

DRUGS (5)
  1. CHLORDIAZEPOXIDE [Concomitant]
     Route: 048
  2. FAMOTIDINE [Concomitant]
  3. ZONISAMIDE [Concomitant]
     Indication: LENNOX-GASTAUT SYNDROME
     Dosage: 80MG PER DAY
     Route: 048
  4. LAMICTAL [Suspect]
     Indication: LENNOX-GASTAUT SYNDROME
     Dosage: 2MG PER DAY
     Route: 048
     Dates: start: 20100603
  5. DEPAKENE [Concomitant]
     Indication: LENNOX-GASTAUT SYNDROME
     Dosage: 250MG PER DAY
     Route: 048

REACTIONS (6)
  - VOMITING [None]
  - HYPERVIGILANCE [None]
  - MOOD ALTERED [None]
  - AGITATION [None]
  - TOXICITY TO VARIOUS AGENTS [None]
  - ACCIDENTAL OVERDOSE [None]
